FAERS Safety Report 5910671-6 (Version None)
Quarter: 2008Q4

REPORT INFORMATION
  Report Type: 
  Country: None (occurrence: None)
  Receive Date: 20081007
  Receipt Date: 20080925
  Transmission Date: 20090506
  Serious: Yes (Death)
  Sender: FDA-Public Use
  Company Number: SE-ROCHE-586937

PATIENT
  Age: 63 Year
  Sex: Female

DRUGS (8)
  1. XELODA [Suspect]
     Dosage: FREQUENCY REPORTED AS: 1500 MG X 2 DAY 1-14 EVERY 28 DAY
     Route: 048
     Dates: start: 20080225, end: 20080808
  2. GEMZAR [Suspect]
     Indication: DRUG USE FOR UNKNOWN INDICATION
     Route: 065
     Dates: start: 20080225, end: 20080808
  3. OMEPRAZOLE [Concomitant]
  4. SIMVASTATIN [Concomitant]
  5. HUMAN INSULIN [Concomitant]
  6. LASIX [Concomitant]
  7. ATENOLOL [Concomitant]
  8. ASPIRIN [Concomitant]

REACTIONS (1)
  - CARDIOMYOPATHY [None]
